FAERS Safety Report 25239493 (Version 1)
Quarter: 2025Q2

REPORT INFORMATION
  Report Type: Spontaneous
  Country: US (occurrence: None)
  Receive Date: 20250424
  Receipt Date: 20250424
  Transmission Date: 20250717
  Serious: No
  Sender: FDA-CTU
  Company Number: None

PATIENT
  Age: 58 Year
  Sex: Female
  Weight: 69.75 kg

DRUGS (16)
  1. LEVOFLOXACIN [Suspect]
     Active Substance: LEVOFLOXACIN
     Indication: Urinary tract infection
     Dosage: OTHER QUANTITY : 1 TABLET(S);?FREQUENCY : DAILY;?
     Route: 048
     Dates: start: 20250423, end: 20250423
  2. PROGESTERONE [Concomitant]
     Active Substance: PROGESTERONE
  3. ESTROGENS [Concomitant]
     Active Substance: ESTROGENS
  4. TESTOSTERONE [Concomitant]
     Active Substance: TESTOSTERONE
  5. ALBUTEROL [Concomitant]
     Active Substance: ALBUTEROL
  6. VITAMIN B12 [Concomitant]
     Active Substance: CYANOCOBALAMIN
  7. CALCIUM [Concomitant]
     Active Substance: CALCIUM
  8. MAGNESIUM [Concomitant]
     Active Substance: MAGNESIUM
  9. VITAMIN B [Concomitant]
     Active Substance: VITAMIN B
  10. VITAMIN C [Concomitant]
     Active Substance: ASCORBIC ACID
  11. VITAMIN D [Concomitant]
     Active Substance: VITAMIN D NOS
  12. PREGENOLONE [Concomitant]
  13. PRASTERONE [Concomitant]
     Active Substance: PRASTERONE
  14. IRON [Concomitant]
     Active Substance: IRON
  15. COENZYME Q10 [Concomitant]
     Active Substance: DIETARY SUPPLEMENT\UBIDECARENONE
  16. CLARITIN [Concomitant]
     Active Substance: LORATADINE

REACTIONS (8)
  - Myalgia [None]
  - Arthralgia [None]
  - Malaise [None]
  - Headache [None]
  - Musculoskeletal stiffness [None]
  - Heart rate increased [None]
  - Respiratory rate increased [None]
  - Pyrexia [None]

NARRATIVE: CASE EVENT DATE: 20250424
